FAERS Safety Report 12882188 (Version 1)
Quarter: 2016Q4

REPORT INFORMATION
  Report Type: Spontaneous
  Country: GB (occurrence: GB)
  Receive Date: 20161025
  Receipt Date: 20161025
  Transmission Date: 20170207
  Serious: Yes (Death, Hospitalization)
  Sender: FDA-Public Use
  Company Number: GB-CELGENEUS-GBR-2016103295

PATIENT
  Sex: Male

DRUGS (1)
  1. REVLIMID [Suspect]
     Active Substance: LENALIDOMIDE
     Indication: COMPOSITE LYMPHOMA
     Dosage: 10 MILLIGRAM
     Route: 048
     Dates: start: 20160803

REACTIONS (1)
  - Composite lymphoma [Fatal]
